FAERS Safety Report 6405244-5 (Version None)
Quarter: 2009Q4

REPORT INFORMATION
  Report Type: 
  Country: None (occurrence: None)
  Receive Date: 20091016
  Receipt Date: 20091016
  Transmission Date: 20100525
  Serious: Yes (Other)
  Sender: FDA-Public Use
  Company Number: None

PATIENT
  Sex: Female

DRUGS (3)
  1. DEPAKOTE ER [Suspect]
     Dosage: 3 TABS AM 3 TABS PM TOTAL 210/ 11RF
  2. TEGRETOL [Concomitant]
  3. LEVETIRACETAM [Concomitant]

REACTIONS (1)
  - CONVULSION [None]
